FAERS Safety Report 5595391-2 (Version None)
Quarter: 2008Q1

REPORT INFORMATION
  Report Type: 
  Country: None (occurrence: None)
  Receive Date: 20080118
  Receipt Date: 20080116
  Transmission Date: 20080703
  Serious: Yes (Other)
  Sender: FDA-Public Use
  Company Number: US-BAYER-200713379BWH

PATIENT

DRUGS (1)
  1. SORAFENIB [Suspect]
     Indication: DRUG USE FOR UNKNOWN INDICATION
     Route: 048

REACTIONS (8)
  - BLOOD ALBUMIN DECREASED [None]
  - BLOOD POTASSIUM INCREASED [None]
  - HAEMOGLOBIN ABNORMAL [None]
  - NEUTROPHIL COUNT ABNORMAL [None]
  - PAIN IN EXTREMITY [None]
  - PLATELET DISORDER [None]
  - VENTRICULAR ARRHYTHMIA [None]
  - WHITE BLOOD CELL COUNT ABNORMAL [None]
